FAERS Safety Report 5507301-4 (Version None)
Quarter: 2007Q4

REPORT INFORMATION
  Report Type: 
  Country: None (occurrence: None)
  Receive Date: 20071102
  Receipt Date: 20071024
  Transmission Date: 20080405
  Serious: Yes (Hospitalization)
  Sender: FDA-Public Use
  Company Number: FRP07000999

PATIENT
  Age: 76 Year
  Sex: Female

DRUGS (14)
  1. ACTONEL [Suspect]
     Dosage: 35 MG, 1/WEEK, ORAL
     Route: 048
  2. FURADANTIN [Suspect]
     Indication: URINARY TRACT INFECTION
     Dosage: 150 MG, DAILY, ORAL
     Route: 048
     Dates: start: 20070904, end: 20070911
  3. DAONIL (GLIBENCLAMIDE) [Suspect]
     Indication: TYPE 2 DIABETES MELLITUS
     Dosage: 15 MG, DAILY, ORAL
     Route: 048
  4. INEXIUM /01479302/(ESOMEPRAZOLE MAGNESIUM) [Suspect]
     Dosage: 20 MG, DAILY, ORAL
     Route: 048
  5. TRIATEC /00885601/(RAMIPRIL) [Suspect]
     Dosage: 7.5 MG, DAILY, ORAL
     Route: 048
  6. LEVOTHYROXINE SODIUM [Concomitant]
  7. AVLOCARDYL /000300001/(PROPRANOLOL) [Concomitant]
  8. TARDYFERON /00023503/ (FERROUS SULFATE) [Concomitant]
  9. GLUCOPHAGE /00082701/ (METFORMIN) [Concomitant]
  10. INSULATARD /00030504/ (INSULIN INJECTION, ISOPHANE) [Concomitant]
  11. LOVENOX /00889602/ (HEPARIN-FRACTION, SODIUM SALT) [Concomitant]
  12. SPIRIVA [Concomitant]
  13. SERETIDE /01420901/ (SALMETEROL XINAFOATE, FLUTICASONE PROPIONATE) [Concomitant]
  14. LASILIX /00032601/ (FUROSEMIDE) [Concomitant]

REACTIONS (1)
  - PANCYTOPENIA [None]
